FAERS Safety Report 22945595 (Version 2)
Quarter: 2023Q4

REPORT INFORMATION
  Report Type: Report from Study
  Country: CA (occurrence: CA)
  Receive Date: 20230914
  Receipt Date: 20231103
  Transmission Date: 20240110
  Serious: No
  Sender: FDA-Public Use
  Company Number: CA-002147023-NVSC2021CA120972

PATIENT
  Age: 79 Year
  Sex: Male

DRUGS (11)
  1. ETANERCEPT [Suspect]
     Active Substance: ETANERCEPT
     Dosage: 50 MG, QMO
     Route: 058
     Dates: start: 202211
  2. ETANERCEPT [Suspect]
     Active Substance: ETANERCEPT
     Indication: Ankylosing spondylitis
     Dosage: 50 MG, QW, PRE-FILLED PEN
     Route: 058
     Dates: start: 20210518
  3. ETANERCEPT [Suspect]
     Active Substance: ETANERCEPT
     Dosage: 50 MG, Q3W,EVERY 3 WEEKS.
     Route: 058
  4. ADVIL [Concomitant]
     Active Substance: IBUPROFEN
     Indication: Product used for unknown indication
     Dosage: UNK
     Route: 065
  5. BIAXIN [Concomitant]
     Active Substance: CLARITHROMYCIN
     Dosage: 250 MG, QD (FOR ONE MONTH)
     Route: 048
  6. BIAXIN [Concomitant]
     Active Substance: CLARITHROMYCIN
     Indication: Antibiotic therapy
     Dosage: 500 MG, BID (FOR 10 DAYS)
     Route: 048
  7. CELEBREX [Concomitant]
     Active Substance: CELECOXIB
     Indication: Product used for unknown indication
     Dosage: UNK
     Route: 065
  8. IMDUR [Concomitant]
     Active Substance: ISOSORBIDE MONONITRATE
     Indication: Product used for unknown indication
     Dosage: UNK
     Route: 048
     Dates: start: 1996
  9. INSULIN NOS [Concomitant]
     Active Substance: INSULIN NOS
     Indication: Product used for unknown indication
     Dosage: UNK
     Route: 058
     Dates: start: 2019
  10. NAPROXEN [Concomitant]
     Active Substance: NAPROXEN
     Indication: Product used for unknown indication
     Dosage: UNK
     Route: 065
  11. NORVASC [Concomitant]
     Active Substance: AMLODIPINE BESYLATE
     Indication: Product used for unknown indication
     Dosage: UNK
     Route: 048
     Dates: start: 1996

REACTIONS (19)
  - Temperature intolerance [Unknown]
  - Back pain [Unknown]
  - Renal disorder [Unknown]
  - Nausea [Recovered/Resolved]
  - Balance disorder [Unknown]
  - Joint swelling [Recovered/Resolved]
  - Dizziness postural [Unknown]
  - Cardiac disorder [Unknown]
  - Peripheral swelling [Unknown]
  - Contusion [Unknown]
  - Arthralgia [Unknown]
  - Chest discomfort [Recovered/Resolved]
  - Fatigue [Unknown]
  - Headache [Recovered/Resolved]
  - Rash [Unknown]
  - Injection site haemorrhage [Unknown]
  - Off label use [Unknown]
  - Therapeutic product effect decreased [Unknown]
  - Inappropriate schedule of product administration [Unknown]

NARRATIVE: CASE EVENT DATE: 20210519
